FAERS Safety Report 23987622 (Version 2)
Quarter: 2024Q4

REPORT INFORMATION
  Report Type: Spontaneous
  Country: FR (occurrence: FR)
  Receive Date: 20240618
  Receipt Date: 20241115
  Transmission Date: 20250115
  Serious: No
  Sender: BIOGEN
  Company Number: FR-BIOGEN-2024BI01269849

PATIENT
  Age: 65 Year
  Sex: Female

DRUGS (1)
  1. OMAVELOXOLONE [Suspect]
     Active Substance: OMAVELOXOLONE
     Indication: Friedreich^s ataxia
     Route: 050
     Dates: start: 20240306

REACTIONS (1)
  - Friedreich^s ataxia [Unknown]
